FAERS Safety Report 19359790 (Version 1)
Quarter: 2021Q2

REPORT INFORMATION
  Report Type: Spontaneous
  Country: IN (occurrence: IN)
  Receive Date: 20210601
  Receipt Date: 20210601
  Transmission Date: 20210717
  Serious: Yes (Other)
  Sender: FDA-Public Use
  Company Number: IN-MACLEODS PHARMA UK LTD-MAC2021031294

PATIENT

DRUGS (4)
  1. ISONIAZID. [Suspect]
     Active Substance: ISONIAZID
     Indication: EVIDENCE BASED TREATMENT
     Dosage: UNK
     Route: 065
  2. TERBINAFINE. [Suspect]
     Active Substance: TERBINAFINE
     Indication: FUNGAL SKIN INFECTION
     Dosage: UNK
     Route: 065
  3. PYRAZINAMIDE. [Suspect]
     Active Substance: PYRAZINAMIDE
     Indication: EVIDENCE BASED TREATMENT
     Dosage: UNK
     Route: 065
  4. RIFAMPICIN [Suspect]
     Active Substance: RIFAMPIN
     Indication: EVIDENCE BASED TREATMENT
     Dosage: UNK
     Route: 065

REACTIONS (1)
  - Drug-induced liver injury [Unknown]
